FAERS Safety Report 9135939 (Version 1)
Quarter: 2013Q1

REPORT INFORMATION
  Report Type: Spontaneous
  Country: US (occurrence: US)
  Receive Date: 20130304
  Receipt Date: 20130304
  Transmission Date: 20140127
  Serious: No
  Sender: FDA-Public Use
  Company Number: US-ABBOTT-12P-163-0919101-00

PATIENT
  Age: 55 None
  Sex: Male
  Weight: 113.5 kg

DRUGS (7)
  1. ANDROGEL 1% [Suspect]
     Indication: BLOOD TESTOSTERONE DECREASED
     Dosage: 10 PUMPS PER DAY
     Dates: start: 2007, end: 20120323
  2. ANDROGEL 1% [Suspect]
     Dosage: 7 PUMPS PER DAY
     Dates: start: 20120324
  3. CYMBALTA [Concomitant]
     Indication: DEPRESSION
  4. ALTACE [Concomitant]
     Indication: BLOOD PRESSURE
  5. PRAVASTATIN [Concomitant]
     Indication: BLOOD CHOLESTEROL INCREASED
  6. TRILIPIX [Concomitant]
     Indication: BLOOD CHOLESTEROL INCREASED
  7. ASPIRIN [Concomitant]
     Indication: ANTICOAGULANT THERAPY

REACTIONS (9)
  - Blood testosterone increased [Not Recovered/Not Resolved]
  - Decreased appetite [Recovering/Resolving]
  - Psychomotor hyperactivity [Recovering/Resolving]
  - Palpitations [Recovering/Resolving]
  - Nervousness [Recovering/Resolving]
  - Confusional state [Recovering/Resolving]
  - Unevaluable event [Recovering/Resolving]
  - Anger [Recovering/Resolving]
  - Product quality issue [Unknown]
